FAERS Safety Report 8579851-8 (Version None)
Quarter: 2012Q3

REPORT INFORMATION
  Report Type: 
  Country: None (occurrence: None)
  Receive Date: 20120808
  Receipt Date: 20120730
  Transmission Date: 20120928
  Serious: Yes (Hospitalization)
  Sender: FDA-Public Use
  Company Number: JP-BAYER-2012-077522

PATIENT
  Age: 25 Year
  Sex: Female
  Weight: 53 kg

DRUGS (2)
  1. YAZ [Suspect]
     Dosage: DAILY DOSE 1 DF
     Route: 048
     Dates: start: 20120610, end: 20120625
  2. ZOLOFT [Concomitant]
     Dosage: UNK
     Route: 048

REACTIONS (2)
  - VISUAL FIELD DEFECT [None]
  - VOMITING [None]
